FAERS Safety Report 8777927 (Version 2)
Quarter: 2012Q4

REPORT INFORMATION
  Report Type: 
  Country: AR (occurrence: AR)
  Receive Date: 20120912
  Receipt Date: 20121107
  Transmission Date: 20130627
  Serious: Yes (Other)
  Sender: FDA-Public Use
  Company Number: PHHY2012AR078341

PATIENT
  Age: 74 Year
  Sex: Female

DRUGS (2)
  1. HEPARIN [Suspect]
     Indication: NEPHROANGIOSCLEROSIS
     Dosage: 40 U, UNK
  2. HEPARIN [Suspect]
     Dosage: 10 U, UNK

REACTIONS (8)
  - Pericardial effusion [Unknown]
  - Heparin-induced thrombocytopenia [Unknown]
  - Deep vein thrombosis [Unknown]
  - Thrombocytopenia [Unknown]
  - Dyspnoea [Unknown]
  - Tachycardia [Recovering/Resolving]
  - Chest pain [Recovering/Resolving]
  - Cyanosis [Unknown]
